FAERS Safety Report 19856097 (Version 1)
Quarter: 2021Q3

REPORT INFORMATION
  Report Type: Spontaneous
  Country: US (occurrence: US)
  Receive Date: 20210920
  Receipt Date: 20210920
  Transmission Date: 20211014
  Serious: Yes (Other)
  Sender: FDA-Public Use
  Company Number: None

PATIENT
  Age: 16 Year
  Sex: Female
  Weight: 66.6 kg

DRUGS (1)
  1. KYMRIAH [Suspect]
     Active Substance: TISAGENLECLEUCEL
     Indication: B PRECURSOR TYPE ACUTE LEUKAEMIA
     Dosage: ?          OTHER FREQUENCY:ONCE;?
     Route: 042
     Dates: start: 20210607, end: 20210607

REACTIONS (7)
  - Hypotension [None]
  - Cytokine release syndrome [None]
  - Headache [None]
  - Pyrexia [None]
  - Delirium [None]
  - Seizure [None]
  - Neurotoxicity [None]

NARRATIVE: CASE EVENT DATE: 20210607
